FAERS Safety Report 14702658 (Version 1)
Quarter: 2018Q2

REPORT INFORMATION
  Report Type: Spontaneous
  Country: DE (occurrence: DE)
  Receive Date: 20180402
  Receipt Date: 20180402
  Transmission Date: 20180711
  Serious: Yes (Disabling, Other)
  Sender: FDA-Public Use
  Company Number: DE-TEVA-2018-DE-877798

PATIENT
  Age: 78 Year
  Sex: Male
  Weight: 75 kg

DRUGS (62)
  1. DEXAMETHASON 20 MG [Suspect]
     Active Substance: DEXAMETHASONE
     Route: 048
     Dates: start: 20170515, end: 20170515
  2. DEXAMETHASON 20 MG [Suspect]
     Active Substance: DEXAMETHASONE
     Route: 048
     Dates: start: 20170303, end: 20170303
  3. DEXAMETHASON [Concomitant]
     Active Substance: DEXAMETHASONE
     Indication: PRODUCT USED FOR UNKNOWN INDICATION
     Dosage: DOSAGE FORM: UNSPECIFIED
     Route: 065
     Dates: start: 20170227, end: 20170602
  4. DEXAMETHASON 20 MG [Suspect]
     Active Substance: DEXAMETHASONE
     Indication: PLASMA CELL MYELOMA
     Route: 048
     Dates: start: 20170324, end: 20170324
  5. DEXAMETHASON 20 MG [Suspect]
     Active Substance: DEXAMETHASONE
     Route: 048
     Dates: start: 20170527, end: 20170527
  6. VELCADE [Suspect]
     Active Substance: BORTEZOMIB
     Indication: PLASMA CELL MYELOMA
     Route: 058
     Dates: start: 20170323, end: 20170323
  7. VELCADE [Suspect]
     Active Substance: BORTEZOMIB
     Indication: PLASMA CELL MYELOMA
     Route: 058
     Dates: start: 20170330, end: 20170330
  8. VELCADE [Suspect]
     Active Substance: BORTEZOMIB
     Indication: PLASMA CELL MYELOMA
     Route: 058
     Dates: start: 20170418, end: 20170418
  9. VELCADE [Suspect]
     Active Substance: BORTEZOMIB
     Indication: PLASMA CELL MYELOMA
     Route: 058
     Dates: start: 20170523, end: 20170523
  10. VELCADE [Suspect]
     Active Substance: BORTEZOMIB
     Indication: PLASMA CELL MYELOMA
     Route: 058
     Dates: start: 20170320, end: 20170320
  11. VELCADE [Suspect]
     Active Substance: BORTEZOMIB
     Indication: PLASMA CELL MYELOMA
     Route: 058
     Dates: start: 20170227, end: 20170227
  12. DEXAMETHASON 20 MG [Suspect]
     Active Substance: DEXAMETHASONE
     Route: 048
     Dates: start: 20170309, end: 20170309
  13. DEXAMETHASON 20 MG [Suspect]
     Active Substance: DEXAMETHASONE
     Route: 048
     Dates: start: 20170516, end: 20170516
  14. DEXAMETHASON 20 MG [Suspect]
     Active Substance: DEXAMETHASONE
     Route: 048
     Dates: start: 20170526, end: 20170526
  15. DEXAMETHASON 20 MG [Suspect]
     Active Substance: DEXAMETHASONE
     Route: 048
     Dates: start: 20170321, end: 20170321
  16. DEXAMETHASON 20 MG [Suspect]
     Active Substance: DEXAMETHASONE
     Route: 048
     Dates: start: 20170509, end: 20170509
  17. DEXAMETHASON 20 MG [Suspect]
     Active Substance: DEXAMETHASONE
     Route: 048
     Dates: start: 20170320, end: 20170320
  18. DEXAMETHASON 20 MG [Suspect]
     Active Substance: DEXAMETHASONE
     Route: 048
     Dates: start: 20170506, end: 20170506
  19. VELCADE [Suspect]
     Active Substance: BORTEZOMIB
     Indication: PLASMA CELL MYELOMA
     Route: 058
     Dates: start: 20170309, end: 20170309
  20. VELCADE [Suspect]
     Active Substance: BORTEZOMIB
     Indication: PLASMA CELL MYELOMA
     Route: 058
     Dates: start: 20170515, end: 20170515
  21. VELCADE [Suspect]
     Active Substance: BORTEZOMIB
     Indication: PLASMA CELL MYELOMA
     Route: 058
     Dates: start: 20170511, end: 20170511
  22. VELCADE [Suspect]
     Active Substance: BORTEZOMIB
     Indication: PLASMA CELL MYELOMA
     Route: 058
     Dates: start: 20170410, end: 20170410
  23. DEXAMETHASON 20 MG [Suspect]
     Active Substance: DEXAMETHASONE
     Route: 048
     Dates: start: 20170512, end: 20170512
  24. DEXAMETHASON 20 MG [Suspect]
     Active Substance: DEXAMETHASONE
     Route: 048
     Dates: start: 20170414, end: 20170414
  25. DEXAMETHASON 20 MG [Suspect]
     Active Substance: DEXAMETHASONE
     Route: 048
     Dates: start: 20170227, end: 20170227
  26. DEXAMETHASON 20 MG [Suspect]
     Active Substance: DEXAMETHASONE
     Route: 048
     Dates: start: 20170523, end: 20170523
  27. DEXAMETHASON 20 MG [Suspect]
     Active Substance: DEXAMETHASONE
     Route: 048
     Dates: start: 20170505, end: 20170505
  28. DEXAMETHASON 20 MG [Suspect]
     Active Substance: DEXAMETHASONE
     Route: 048
     Dates: start: 20170602, end: 20170602
  29. DEXAMETHASON 20 MG [Suspect]
     Active Substance: DEXAMETHASONE
     Route: 048
     Dates: start: 20170306, end: 20170306
  30. DEXAMETHASON 20 MG [Suspect]
     Active Substance: DEXAMETHASONE
     Route: 048
     Dates: start: 20170331, end: 20170331
  31. DEXAMETHASON 20 MG [Suspect]
     Active Substance: DEXAMETHASONE
     Route: 048
     Dates: start: 20170302, end: 20170302
  32. DEXAMETHASON 20 MG [Suspect]
     Active Substance: DEXAMETHASONE
     Route: 048
     Dates: start: 20170511, end: 20170511
  33. DEXAMETHASON 20 MG [Suspect]
     Active Substance: DEXAMETHASONE
     Route: 048
     Dates: start: 20170330, end: 20170330
  34. VELCADE [Suspect]
     Active Substance: BORTEZOMIB
     Indication: PLASMACYTOMA
     Dosage: DOSAGE FORM: LYOPHILIZED POWDER
     Route: 058
     Dates: start: 20170227, end: 20170330
  35. VELCADE [Suspect]
     Active Substance: BORTEZOMIB
     Indication: PLASMA CELL MYELOMA
     Route: 058
     Dates: start: 20170508, end: 20170508
  36. VELCADE [Suspect]
     Active Substance: BORTEZOMIB
     Indication: PLASMA CELL MYELOMA
     Route: 058
     Dates: start: 20170302, end: 20170302
  37. DEXAMETHASON 20 MG [Suspect]
     Active Substance: DEXAMETHASONE
     Route: 048
     Dates: start: 20170601, end: 20170601
  38. DEXAMETHASON 20 MG [Suspect]
     Active Substance: DEXAMETHASONE
     Route: 048
     Dates: start: 20170413, end: 20170413
  39. DEXAMETHASON 20 MG [Suspect]
     Active Substance: DEXAMETHASONE
     Route: 048
     Dates: start: 20170411, end: 20170411
  40. DEXAMETHASON 20 MG [Suspect]
     Active Substance: DEXAMETHASONE
     Route: 048
     Dates: start: 20170310, end: 20170310
  41. DEXAMETHASON 20 MG [Suspect]
     Active Substance: DEXAMETHASONE
     Route: 048
     Dates: start: 20170410, end: 20170410
  42. VELCADE [Suspect]
     Active Substance: BORTEZOMIB
     Indication: PLASMA CELL MYELOMA
     Route: 058
     Dates: start: 20170421, end: 20170421
  43. VELCADE [Suspect]
     Active Substance: BORTEZOMIB
     Indication: PLASMA CELL MYELOMA
     Route: 058
     Dates: start: 20170529, end: 20170529
  44. VELCADE [Suspect]
     Active Substance: BORTEZOMIB
     Indication: PLASMA CELL MYELOMA
     Route: 058
     Dates: start: 20170526, end: 20170526
  45. DEXAMETHASON 20 MG [Suspect]
     Active Substance: DEXAMETHASONE
     Route: 048
     Dates: start: 20170323, end: 20170323
  46. DEXAMETHASON 20 MG [Suspect]
     Active Substance: DEXAMETHASONE
     Route: 048
     Dates: start: 20170422, end: 20170422
  47. DEXAMETHASON 20 MG [Suspect]
     Active Substance: DEXAMETHASONE
     Route: 048
     Dates: start: 20170508, end: 20170508
  48. DEXAMETHASON 20 MG [Suspect]
     Active Substance: DEXAMETHASONE
     Route: 048
     Dates: start: 20170328, end: 20170328
  49. DEXAMETHASON 20 MG [Suspect]
     Active Substance: DEXAMETHASONE
     Route: 048
     Dates: start: 20170419, end: 20170419
  50. DEXAMETHASON 20 MG [Suspect]
     Active Substance: DEXAMETHASONE
     Route: 048
     Dates: start: 20170529, end: 20170529
  51. DEXAMETHASON 20 MG [Suspect]
     Active Substance: DEXAMETHASONE
     Route: 048
     Dates: start: 20170228, end: 20170228
  52. DEXAMETHASON 20 MG [Suspect]
     Active Substance: DEXAMETHASONE
     Route: 048
     Dates: start: 20170421, end: 20170421
  53. VELCADE [Suspect]
     Active Substance: BORTEZOMIB
     Indication: PLASMA CELL MYELOMA
     Route: 058
     Dates: start: 20170306, end: 20170306
  54. VELCADE [Suspect]
     Active Substance: BORTEZOMIB
     Indication: PLASMA CELL MYELOMA
     Route: 058
     Dates: start: 20170327, end: 20170327
  55. DEXAMETHASON 20 MG [Suspect]
     Active Substance: DEXAMETHASONE
     Route: 048
     Dates: start: 20170418, end: 20170418
  56. DEXAMETHASON 20 MG [Suspect]
     Active Substance: DEXAMETHASONE
     Route: 048
     Dates: start: 20170307, end: 20170307
  57. DEXAMETHASON 20 MG [Suspect]
     Active Substance: DEXAMETHASONE
     Route: 048
     Dates: start: 20170530, end: 20170530
  58. DEXAMETHASON 20 MG [Suspect]
     Active Substance: DEXAMETHASONE
     Route: 048
     Dates: start: 20170524, end: 20170524
  59. VELCADE [Suspect]
     Active Substance: BORTEZOMIB
     Indication: PLASMACYTOMA
     Dosage: DOSAGE FORM: LYOPHILIZED POWDER
     Route: 058
     Dates: start: 20170410, end: 20170601
  60. VELCADE [Suspect]
     Active Substance: BORTEZOMIB
     Indication: PLASMA CELL MYELOMA
     Route: 058
     Dates: start: 20170413, end: 20170413
  61. VELCADE [Suspect]
     Active Substance: BORTEZOMIB
     Indication: PLASMA CELL MYELOMA
     Route: 058
     Dates: start: 20170601, end: 20170601
  62. VELCADE [Suspect]
     Active Substance: BORTEZOMIB
     Indication: PLASMA CELL MYELOMA
     Route: 058
     Dates: start: 20170505, end: 20170505

REACTIONS (5)
  - Fatigue [Not Recovered/Not Resolved]
  - Herpes zoster [Recovered/Resolved]
  - Polyneuropathy [Not Recovered/Not Resolved]
  - Suspected counterfeit product [Unknown]
  - General physical health deterioration [Unknown]

NARRATIVE: CASE EVENT DATE: 20170427
